FAERS Safety Report 25954742 (Version 1)
Quarter: 2025Q4

REPORT INFORMATION
  Report Type: Spontaneous
  Country: CA (occurrence: CA)
  Receive Date: 20251024
  Receipt Date: 20251024
  Transmission Date: 20260118
  Serious: Yes (Other)
  Sender: ABBVIE
  Company Number: CA-ABBVIE-6512872

PATIENT
  Age: 43 Year
  Sex: Female

DRUGS (1)
  1. ORILISSA [Suspect]
     Active Substance: ELAGOLIX SODIUM
     Indication: Degeneration of uterine leiomyoma
     Route: 048

REACTIONS (3)
  - Malaise [Unknown]
  - Muscular weakness [Unknown]
  - Hot flush [Unknown]
